FAERS Safety Report 23535339 (Version 2)
Quarter: 2024Q1

REPORT INFORMATION
  Report Type: Spontaneous
  Country: RO (occurrence: RO)
  Receive Date: 20240218
  Receipt Date: 20240227
  Transmission Date: 20240410
  Serious: Yes (Hospitalization)
  Sender: FDA-Public Use
  Company Number: RO-ABBVIE-5506633

PATIENT
  Age: 47 Year
  Sex: Female

DRUGS (5)
  1. ADALIMUMAB [Suspect]
     Active Substance: ADALIMUMAB\ISOPROPYL ALCOHOL
     Indication: Rheumatoid arthritis
     Dosage: LAST ADMIN 202240MG/SC/2 WEEKS
     Route: 058
     Dates: start: 201808
  2. RINVOQ [Suspect]
     Active Substance: UPADACITINIB
     Indication: Product used for unknown indication
     Dosage: 15 MILLIGRAM
     Route: 048
     Dates: start: 202212
  3. UPADACITINIB [Suspect]
     Active Substance: UPADACITINIB
     Indication: Product used for unknown indication
     Dosage: 15 MILLIGRAM
     Route: 048
     Dates: start: 202208
  4. METHOTREXATE [Concomitant]
     Active Substance: METHOTREXATE
     Indication: Product used for unknown indication
     Dosage: 15 MG/SC/WEEK
     Route: 065
     Dates: start: 201511
  5. METHOTREXATE [Concomitant]
     Active Substance: METHOTREXATE
     Dosage: 15 MG/SC/WEEK
     Route: 065
     Dates: start: 202212

REACTIONS (12)
  - Renal cell carcinoma [Unknown]
  - Hyperthermia malignant [Unknown]
  - Uterine leiomyoma [Unknown]
  - Joint stiffness [Unknown]
  - Asthenia [Unknown]
  - Arthralgia [Unknown]
  - Pain [Unknown]
  - Drug ineffective [Unknown]
  - Rheumatoid arthritis [Unknown]
  - Osteoporosis [Unknown]
  - Osteoarthritis [Unknown]
  - Osteoporosis postmenopausal [Unknown]

NARRATIVE: CASE EVENT DATE: 20200101
